FAERS Safety Report 18680927 (Version 1)
Quarter: 2020Q4

REPORT INFORMATION
  Report Type: Spontaneous
  Country: US (occurrence: US)
  Receive Date: 20201230
  Receipt Date: 20201230
  Transmission Date: 20210114
  Serious: Yes (Life-Threatening, Other)
  Sender: FDA-Public Use
  Company Number: US-AUROBINDO-AUR-APL-2020-063207

PATIENT
  Age: 76 Year
  Sex: Female

DRUGS (1)
  1. METHOTREXATE. [Suspect]
     Active Substance: METHOTREXATE
     Indication: ARTHRITIS
     Dosage: 10 MILLIGRAM, ONCE A DAY (PATIENT REPORTED TAKING MTX 10 MG DAILY INSTEAD OF WEEKLY)
     Route: 065

REACTIONS (7)
  - Skin ulcer [Recovered/Resolved]
  - Hypoalbuminaemia [Unknown]
  - Acute kidney injury [Unknown]
  - Pancytopenia [Recovered/Resolved]
  - Inappropriate schedule of product administration [Unknown]
  - Mouth ulceration [Recovered/Resolved]
  - Toxicity to various agents [Unknown]
